FAERS Safety Report 23136376 (Version 1)
Quarter: 2023Q4

REPORT INFORMATION
  Report Type: Spontaneous
  Country: GB (occurrence: GB)
  Receive Date: 20231102
  Receipt Date: 20231102
  Transmission Date: 20240110
  Serious: Yes (Disabling)
  Sender: FDA-Public Use
  Company Number: None

PATIENT
  Age: 61 Year
  Sex: Male
  Weight: 105 kg

DRUGS (2)
  1. LISINOPRIL [Suspect]
     Active Substance: LISINOPRIL
     Indication: Hypertension
     Dosage: 10 MILLIGRAM DAILY; 10MG ONCE A DAY AT NIGHT, DURATION: 3 YEARS
     Route: 065
     Dates: start: 2020, end: 20231005
  2. ALLOPURINOL [Concomitant]
     Active Substance: ALLOPURINOL
     Indication: Gout
     Dates: start: 19950101

REACTIONS (3)
  - Angioedema [Recovering/Resolving]
  - Intestinal angioedema [Recovered/Resolved]
  - Food allergy [Recovering/Resolving]

NARRATIVE: CASE EVENT DATE: 20210101
